FAERS Safety Report 5472508-1 (Version None)
Quarter: 2007Q3

REPORT INFORMATION
  Report Type: 
  Country: None (occurrence: None)
  Receive Date: 20070927
  Receipt Date: 20070911
  Transmission Date: 20080115
  Serious: Yes (Death)
  Sender: FDA-Public Use
  Company Number: B0488063A

PATIENT
  Age: 69 Year
  Sex: Male

DRUGS (4)
  1. PREDNISOLONE [Suspect]
     Indication: PEMPHIGUS
  2. LAMIVUDINE [Suspect]
     Dosage: 100 MG / PER DAY
  3. MYCOPHENOLATE MOFETIL [Concomitant]
  4. CYCLOSPORINE [Concomitant]

REACTIONS (3)
  - HEPATITIS ACUTE [None]
  - HEPATITIS B [None]
  - PEMPHIGUS [None]
